FAERS Safety Report 6084845-0 (Version None)
Quarter: 2009Q1

REPORT INFORMATION
  Report Type: 
  Country: None (occurrence: None)
  Receive Date: 20090218
  Receipt Date: 20090208
  Transmission Date: 20090719
  Serious: Yes (Other)
  Sender: FDA-Public Use
  Company Number: 2008SP022419

PATIENT
  Age: 49 Year
  Sex: Female
  Weight: 68.0396 kg

DRUGS (2)
  1. PEG-INTRON [Suspect]
     Indication: HEPATITIS C
     Dosage: ;SC
     Route: 058
     Dates: start: 20080527, end: 20081103
  2. RIBAVIRIN [Suspect]
     Indication: HEPATITIS C
     Dosage: ; PO
     Route: 048
     Dates: start: 20080527, end: 20081111

REACTIONS (12)
  - ALOPECIA [None]
  - BODY TEMPERATURE INCREASED [None]
  - DIARRHOEA [None]
  - DYSPHONIA [None]
  - FEELING OF BODY TEMPERATURE CHANGE [None]
  - HOT FLUSH [None]
  - HYPERHIDROSIS [None]
  - PLEURISY [None]
  - PNEUMONIA [None]
  - VOMITING [None]
  - WEIGHT DECREASED [None]
  - WEIGHT INCREASED [None]
